FAERS Safety Report 4789520-8 (Version None)
Quarter: 2005Q4

REPORT INFORMATION
  Report Type: 
  Country: None (occurrence: None)
  Receive Date: 20051005
  Receipt Date: 20051005
  Transmission Date: 20060501
  Serious: Yes (Life-Threatening, Hospitalization)
  Sender: FDA-Public Use
  Company Number: None

PATIENT
  Age: 76 Year
  Sex: Male

DRUGS (6)
  1. SPIRONOLACTONE [Suspect]
     Indication: HYPERTENSION
     Dosage: 100 MG PO BID
     Route: 048
  2. SPIRONOLACTONE [Suspect]
     Indication: HYPOKALAEMIA
     Dosage: 100 MG PO BID
     Route: 048
  3. METOPROLOL [Concomitant]
  4. ASPIRIN [Concomitant]
  5. VERAPAMIL [Concomitant]
  6. ATORVASTATIN [Concomitant]

REACTIONS (4)
  - FATIGUE [None]
  - HEART RATE DECREASED [None]
  - HYPERKALAEMIA [None]
  - RENAL FAILURE CHRONIC [None]
